FAERS Safety Report 9958112 (Version 1)
Quarter: 2014Q1

REPORT INFORMATION
  Report Type: Report from Study
  Country: US (occurrence: US)
  Receive Date: 20140304
  Receipt Date: 20140304
  Transmission Date: 20141002
  Serious: No
  Sender: FDA-Public Use
  Company Number: US-ABBVIE-13P-163-1095078-00

PATIENT
  Sex: Female

DRUGS (15)
  1. HUMIRA [Suspect]
     Indication: CROHN^S DISEASE
     Route: 058
  2. HUMIRA [Suspect]
     Route: 058
  3. NEURONTIN [Suspect]
     Indication: NEUROPATHY PERIPHERAL
  4. LEVOXYL [Concomitant]
     Indication: HYPOTHYROIDISM
  5. CELEBREX [Concomitant]
     Indication: RHEUMATOID ARTHRITIS
  6. CLONIDINE [Concomitant]
     Indication: HYPERTENSION
  7. VITAMINS [Concomitant]
     Indication: PRODUCT USED FOR UNKNOWN INDICATION
  8. LISINOPRIL [Concomitant]
     Indication: HYPERTENSION
  9. PREDNISONE [Concomitant]
     Indication: ARTHRITIS
  10. PREDNISONE [Concomitant]
     Indication: CROHN^S DISEASE
  11. CYMBALTA [Concomitant]
     Indication: BURNING SENSATION
  12. CYMBALTA [Concomitant]
     Indication: PAIN
  13. CYMBALTA [Concomitant]
     Indication: DEPRESSION
  14. OMEPRAZOLE [Concomitant]
     Indication: DYSPEPSIA
  15. ASPIRIN [Concomitant]
     Indication: PRODUCT USED FOR UNKNOWN INDICATION

REACTIONS (5)
  - Neuropathy peripheral [Not Recovered/Not Resolved]
  - Insomnia [Unknown]
  - Confusional state [Unknown]
  - Nausea [Unknown]
  - Restlessness [Unknown]
